FAERS Safety Report 6087735-2 (Version None)
Quarter: 2009Q1

REPORT INFORMATION
  Report Type: 
  Country: None (occurrence: None)
  Receive Date: 20090223
  Receipt Date: 20090216
  Transmission Date: 20090719
  Serious: Yes (Death)
  Sender: FDA-Public Use
  Company Number: FR-SANOFI-SYNTHELABO-F01200900164

PATIENT
  Sex: Male
  Weight: 95 kg

DRUGS (3)
  1. CAPECITABINE [Suspect]
     Route: 048
     Dates: start: 20090120, end: 20090201
  2. DOCETAXEL [Suspect]
     Route: 042
     Dates: start: 20090209, end: 20090209
  3. OXALIPLATIN [Suspect]
     Indication: GASTRIC CANCER
     Route: 042
     Dates: start: 20090209, end: 20090209

REACTIONS (1)
  - DIARRHOEA [None]
